FAERS Safety Report 17865253 (Version 1)
Quarter: 2020Q2

REPORT INFORMATION
  Report Type: Spontaneous
  Country: US (occurrence: US)
  Receive Date: 20200605
  Receipt Date: 20200605
  Transmission Date: 20200714
  Serious: No
  Sender: FDA-Public Use
  Company Number: US-DENDREON PHARMACEUTICAL LLC-2020DEN000027

PATIENT

DRUGS (8)
  1. BENADRYL [Suspect]
     Active Substance: DIPHENHYDRAMINE HYDROCHLORIDE
     Indication: PREMEDICATION
     Dosage: 50 MILLIGRAM, SINGLE
     Route: 042
     Dates: start: 20200106, end: 20200106
  2. BENADRYL [Suspect]
     Active Substance: DIPHENHYDRAMINE HYDROCHLORIDE
     Dosage: 50 MILLIGRAM
     Route: 042
     Dates: start: 20200120, end: 20200120
  3. PROVENGE [Suspect]
     Active Substance: SIPULEUCEL-T
     Dosage: DOSE # 2
     Route: 042
     Dates: start: 20200120, end: 20200120
  4. PEPCID [Concomitant]
     Active Substance: FAMOTIDINE
     Indication: PREMEDICATION
     Dosage: 20 MILLIGRAM, SINGLE
     Dates: start: 20200106, end: 20200106
  5. TYLENOL [Concomitant]
     Active Substance: ACETAMINOPHEN
     Dosage: 1000 MILLIGRAM
     Route: 048
     Dates: start: 20200120, end: 20200120
  6. PEPCID [Concomitant]
     Active Substance: FAMOTIDINE
     Dosage: 20 MILLIGRAM
     Dates: start: 20200120, end: 20200120
  7. PROVENGE [Suspect]
     Active Substance: SIPULEUCEL-T
     Indication: PROSTATE CANCER METASTATIC
     Dosage: DOSE # 1
     Route: 042
     Dates: start: 20200106, end: 20200106
  8. TYLENOL [Concomitant]
     Active Substance: ACETAMINOPHEN
     Indication: PREMEDICATION
     Dosage: 1000 MILLIGRAM, SINGLE
     Route: 048
     Dates: start: 20200106, end: 20200106

REACTIONS (3)
  - Infusion related reaction [Recovered/Resolved]
  - Fatigue [Recovered/Resolved]
  - Hallucination [Recovered/Resolved]

NARRATIVE: CASE EVENT DATE: 20200106
